FAERS Safety Report 8360636-2 (Version None)
Quarter: 2012Q2

REPORT INFORMATION
  Report Type: 
  Country: None (occurrence: None)
  Receive Date: 20120515
  Receipt Date: 20120507
  Transmission Date: 20120825
  Serious: Yes (Other)
  Sender: FDA-Public Use
  Company Number: US-ASTRAZENECA-2012SE29498

PATIENT
  Age: 88 Year
  Sex: Female

DRUGS (1)
  1. SYMBICORT [Suspect]
     Route: 055

REACTIONS (4)
  - MACULAR DEGENERATION [None]
  - PLEURAL EFFUSION [None]
  - VISUAL IMPAIRMENT [None]
  - PERICARDIAL EFFUSION [None]
